FAERS Safety Report 26200410 (Version 1)
Quarter: 2025Q4

REPORT INFORMATION
  Report Type: Spontaneous
  Country: JP (occurrence: JP)
  Receive Date: 20251225
  Receipt Date: 20251225
  Transmission Date: 20260118
  Serious: Yes (Hospitalization, Other)
  Sender: MERCK SHARP & DOHME LLC
  Company Number: JP-009507513-2364225

PATIENT
  Age: 80 Year
  Sex: Male

DRUGS (1)
  1. BELZUTIFAN [Suspect]
     Active Substance: BELZUTIFAN
     Indication: Renal cell carcinoma
     Dosage: 1 TIME A DAY  STRENGH:40MG
     Route: 048
     Dates: start: 202511, end: 20251222

REACTIONS (3)
  - Respiratory failure [Unknown]
  - Anaemia [Unknown]
  - Melaena [Unknown]

NARRATIVE: CASE EVENT DATE: 20250101
